FAERS Safety Report 5583149-X (Version None)
Quarter: 2008Q1

REPORT INFORMATION
  Report Type: 
  Country: None (occurrence: None)
  Receive Date: 20080107
  Receipt Date: 20080102
  Transmission Date: 20080703
  Serious: Yes (Death)
  Sender: FDA-Public Use
  Company Number: GB-TEVA-165892ISR

PATIENT
  Age: 69 Year
  Sex: Female
  Weight: 64.8 kg

DRUGS (1)
  1. CITALOPRAM HYDROBROMIDE [Suspect]
     Indication: MAJOR DEPRESSION
     Route: 048
     Dates: start: 20060601

REACTIONS (1)
  - HYPERTENSIVE HEART DISEASE [None]
